FAERS Safety Report 18470154 (Version 4)
Quarter: 2021Q1

REPORT INFORMATION
  Report Type: Report from Study
  Country: None (occurrence: PL)
  Receive Date: 20201106
  Receipt Date: 20210105
  Transmission Date: 20210419
  Serious: Yes (Hospitalization)
  Sender: FDA-Public Use
  Company Number: PL-ABBVIE-20K-129-3638099-00

PATIENT
  Age: 66 Year
  Sex: Male

DRUGS (7)
  1. DUODOPA [Suspect]
     Active Substance: CARBIDOPA\LEVODOPA
     Dosage: DOSAGE DECREASED
     Route: 050
  2. RIVASTIGMINE MYLAN [Concomitant]
     Active Substance: RIVASTIGMINE
     Indication: DEMENTIA
     Route: 062
  3. AMOXICLAV [Concomitant]
     Active Substance: AMOXICILLIN\CLAVULANATE POTASSIUM
     Indication: PRODUCT USED FOR UNKNOWN INDICATION
  4. HEPARIN [Concomitant]
     Active Substance: HEPARIN SODIUM
     Indication: PROPHYLAXIS
  5. CLEXANE [Concomitant]
     Active Substance: ENOXAPARIN SODIUM
     Indication: PRODUCT USED FOR UNKNOWN INDICATION
  6. DUODOPA [Suspect]
     Active Substance: CARBIDOPA\LEVODOPA
     Indication: PARKINSON^S DISEASE
     Dosage: STOPPED DUODOPA FOR TWO DAYS
     Route: 050
  7. DUODOPA [Suspect]
     Active Substance: CARBIDOPA\LEVODOPA
     Dosage: MD 4.8 ML, CONTINUOUS INFUSION 2.6 ML / H, ADDITIONAL DOSE 1.3 ML
     Route: 050
     Dates: start: 20201217

REACTIONS (39)
  - Demyelinating polyneuropathy [Unknown]
  - Pneumonia [Unknown]
  - Lung opacity [Unknown]
  - Protein deficiency [Unknown]
  - Pneumonia bacterial [Recovering/Resolving]
  - Cerebral small vessel ischaemic disease [Unknown]
  - Unevaluable event [Unknown]
  - Normal pressure hydrocephalus [Unknown]
  - Cachexia [Recovering/Resolving]
  - Device use issue [Unknown]
  - Fatigue [Unknown]
  - Cerebral atrophy [Unknown]
  - Chorea [Recovering/Resolving]
  - Inflammatory marker increased [Recovering/Resolving]
  - Blood electrolytes abnormal [Recovering/Resolving]
  - Anaemia [Recovering/Resolving]
  - Cognitive disorder [Unknown]
  - Hypotension [Unknown]
  - Coagulation time prolonged [Unknown]
  - Withdrawal syndrome [Recovering/Resolving]
  - Oxygen saturation decreased [Unknown]
  - Dementia [Recovering/Resolving]
  - Device connection issue [Recovered/Resolved]
  - Pneumonitis [Unknown]
  - Extrapyramidal disorder [Unknown]
  - Iron deficiency [Unknown]
  - COVID-19 pneumonia [Recovered/Resolved]
  - Delirium [Recovering/Resolving]
  - Infection [Unknown]
  - General physical health deterioration [Unknown]
  - Dyskinesia [Unknown]
  - Cerebral arteriosclerosis [Unknown]
  - Hyporeflexia [Unknown]
  - Altered state of consciousness [Unknown]
  - Thrombocytopenia [Recovering/Resolving]
  - Speech disorder [Unknown]
  - Malnutrition [Unknown]
  - Muscle tightness [Unknown]
  - Muscle atrophy [Unknown]

NARRATIVE: CASE EVENT DATE: 20201001
